FAERS Safety Report 8080773 (Version 5)
Quarter: 2012Q4

REPORT INFORMATION
  Report Type: 
  Country: CA (occurrence: CA)
  Receive Date: 20110808
  Receipt Date: 20121126
  Transmission Date: 20130627
  Serious: Yes (Other)
  Sender: FDA-Public Use
  Company Number: PHHY2011CA63542

PATIENT
  Age: 41 Year
  Sex: Female

DRUGS (3)
  1. GILENYA [Suspect]
     Indication: RELAPSING-REMITTING MULTIPLE SCLEROSIS
     Dosage: 0.5 mg, QD
     Route: 048
     Dates: start: 20110712
  2. UNSPECIFIED INGREDIENT [Interacting]
     Dosage: UNK UKN, UNK
  3. SOLU-MEDROL [Concomitant]

REACTIONS (15)
  - Torticollis [Unknown]
  - Fall [Unknown]
  - Skin mass [Recovering/Resolving]
  - Erythema [Unknown]
  - Pain [Unknown]
  - Fatigue [Recovering/Resolving]
  - Emotional disorder [Unknown]
  - Muscle spasticity [Unknown]
  - Balance disorder [Unknown]
  - Asthenia [Recovering/Resolving]
  - Dyspnoea [Unknown]
  - Menstruation irregular [Unknown]
  - Contusion [Recovered/Resolved]
  - Rash erythematous [Unknown]
  - Drug interaction [Unknown]
